FAERS Safety Report 5602705-3 (Version None)
Quarter: 2008Q1

REPORT INFORMATION
  Report Type: 
  Country: None (occurrence: None)
  Receive Date: 20080125
  Receipt Date: 20080118
  Transmission Date: 20080703
  Serious: Yes (Hospitalization, Disabling)
  Sender: FDA-Public Use
  Company Number: SE-SANOFI-SYNTHELABO-F01200701499

PATIENT
  Sex: Male
  Weight: 83 kg

DRUGS (6)
  1. LYMECYKLIN [Concomitant]
     Indication: SKIN REACTION
     Dosage: 300 MG
     Route: 048
     Dates: start: 20070828, end: 20071108
  2. AVASTIN [Suspect]
     Dosage: 430 MG
     Route: 041
     Dates: start: 20071009, end: 20071009
  3. FLUOROURACIL [Suspect]
     Dosage: 780 MG BOLUS (400 MG/M2) FOLLOWED BY 4680 MG INFUSION (2400 MG/M2)
     Route: 041
     Dates: start: 20071023, end: 20071025
  4. CALCIUM FOLINATE [Suspect]
     Dosage: 780 MG
     Route: 041
     Dates: start: 20071023, end: 20071023
  5. ERBITUX [Suspect]
     Dosage: 485 MG
     Route: 041
     Dates: start: 20071029, end: 20071029
  6. OXALIPLATIN [Suspect]
     Indication: COLORECTAL CANCER METASTATIC
     Dosage: 165 MG
     Route: 042
     Dates: start: 20071023, end: 20071023

REACTIONS (1)
  - ANASTOMOTIC COMPLICATION [None]
